FAERS Safety Report 4710574-9 (Version None)
Quarter: 2005Q3

REPORT INFORMATION
  Report Type: 
  Country: None (occurrence: None)
  Receive Date: 20050707
  Receipt Date: 20050621
  Transmission Date: 20060218
  Serious: Yes (Other)
  Sender: FDA-Public Use
  Company Number: GBS050517487

PATIENT
  Age: 67 Year
  Sex: Male

DRUGS (6)
  1. GEMZAR [Suspect]
     Indication: PANCREATIC CARCINOMA METASTATIC
     Dosage: 2 G DAY
     Dates: start: 20050329
  2. ONDANSETRON [Concomitant]
  3. SOTALOL GENERIC (SOTALOL HYDROCHLORIDE) [Concomitant]
  4. AULIN(NIMESULIDE) [Concomitant]
  5. OMNIC(TAMSULOSIN HYDROCHLORIDE) [Concomitant]
  6. DETRUSITOL SR(TOLTERODINE L-TARTRATE) [Concomitant]

REACTIONS (3)
  - CHILLS [None]
  - FEELING COLD [None]
  - PYREXIA [None]
